FAERS Safety Report 5386586-1 (Version None)
Quarter: 2007Q3

REPORT INFORMATION
  Report Type: 
  Country: None (occurrence: None)
  Receive Date: 20070713
  Receipt Date: 20070709
  Transmission Date: 20080115
  Serious: Yes (Hospitalization)
  Sender: FDA-Public Use
  Company Number: B0478685A

PATIENT
  Age: 60 Year
  Sex: Female

DRUGS (3)
  1. HYCAMTIN [Suspect]
     Indication: OVARIAN CANCER RECURRENT
  2. CORTICOIDS [Concomitant]
     Route: 065
  3. ANTIBIOTICS [Concomitant]
     Route: 065

REACTIONS (5)
  - ALVEOLITIS [None]
  - DYSPNOEA [None]
  - HYPOXIA [None]
  - INTERSTITIAL LUNG DISEASE [None]
  - URINARY TRACT INFECTION [None]
